FAERS Safety Report 20653373 (Version 1)
Quarter: 2022Q1

REPORT INFORMATION
  Report Type: Report from Study
  Country: US (occurrence: None)
  Receive Date: 20220330
  Receipt Date: 20220330
  Transmission Date: 20220423
  Serious: Yes (Life-Threatening, Other)
  Sender: FDA-Public Use
  Company Number: US-ROCHE-2931949

PATIENT
  Age: 72 Year
  Sex: Female
  Weight: 45.5 kg

DRUGS (4)
  1. ATEZOLIZUMAB [Suspect]
     Active Substance: ATEZOLIZUMAB
     Indication: Breast cancer metastatic
     Dosage: ON 14/APR/2021, RECEIVED LAST DOSE.?PATIENTS RECEIVE ATEZOLIZUMAB IV OVER 30-60 MINUTES ON DAY 1 OF
     Route: 042
     Dates: start: 20210326
  2. PERTUZUMAB [Suspect]
     Active Substance: PERTUZUMAB
     Indication: Breast cancer metastatic
     Dosage: ON 14/APR/2021, RECEIVE MOST RECENT DOSE.?PATIENTS RECEIVE PERTUZUMAB IV OVER 30-60 MINUTES ON DAYS
     Route: 042
     Dates: start: 20210326
  3. TRASTUZUMAB [Suspect]
     Active Substance: TRASTUZUMAB
     Indication: Breast cancer metastatic
     Dosage: ON 14/APR/2021, RECEIVE MOST RECENT DOSE.?PATIENTS RECEIVE TRASTUZUMAB IV OVER 30-90 MINUTES ON DAYS
     Route: 041
     Dates: start: 20210326
  4. PACLITAXEL [Suspect]
     Active Substance: PACLITAXEL
     Indication: Breast cancer metastatic
     Dosage: ON 28/APR/2021, RECEIVED LAST DOSE. ?PATIENT RECEIVE PACLITAXEL IV OVER 60 MINUTES ON DAYS 1, 8, 15,
     Route: 042
     Dates: start: 20210326

REACTIONS (7)
  - Decreased appetite [Unknown]
  - Nausea [Unknown]
  - Hypokalaemia [Unknown]
  - Neutrophil count decreased [Unknown]
  - White blood cell count decreased [Unknown]
  - Diarrhoea [Unknown]
  - Constipation [Unknown]

NARRATIVE: CASE EVENT DATE: 20210407
